FAERS Safety Report 22031101 (Version 1)
Quarter: 2023Q1

REPORT INFORMATION
  Report Type: Report from Study
  Country: RO (occurrence: RO)
  Receive Date: 20230223
  Receipt Date: 20230223
  Transmission Date: 20230418
  Serious: Yes (Hospitalization)
  Sender: FDA-Public Use
  Company Number: RO-ABBVIE-4316006

PATIENT
  Age: 78 Year
  Sex: Female

DRUGS (1)
  1. GLECAPREVIR\PIBRENTASVIR [Suspect]
     Active Substance: GLECAPREVIR\PIBRENTASVIR
     Indication: Chronic hepatitis
     Dosage: 300 MG/120 MG
     Route: 048
     Dates: start: 20221012, end: 20221206

REACTIONS (2)
  - Haemorrhoids [Recovering/Resolving]
  - Weight decreased [Recovering/Resolving]
